FAERS Safety Report 23102347 (Version 1)
Quarter: 2023Q4

REPORT INFORMATION
  Report Type: Spontaneous
  Country: ES (occurrence: ES)
  Receive Date: 20231025
  Receipt Date: 20231025
  Transmission Date: 20240110
  Serious: Yes (Other)
  Sender: FDA-Public Use
  Company Number: None

PATIENT
  Age: 4 Month
  Sex: Male
  Weight: 5.5 kg

DRUGS (1)
  1. METAMIZOL SODIUM [Suspect]
     Active Substance: METAMIZOL SODIUM
     Indication: Product used for unknown indication
     Dates: start: 20230822, end: 20230822

REACTIONS (2)
  - Incorrect dosage administered [Unknown]
  - Neutropenia [Recovered/Resolved]

NARRATIVE: CASE EVENT DATE: 20230822
